FAERS Safety Report 22355324 (Version 1)
Quarter: 2023Q2

REPORT INFORMATION
  Report Type: Report from Study
  Country: US (occurrence: US)
  Receive Date: 20230523
  Receipt Date: 20230523
  Transmission Date: 20230721
  Serious: Yes (Other)
  Sender: FDA-Public Use
  Company Number: US-ABBVIE-5175757

PATIENT
  Sex: Male

DRUGS (1)
  1. IMBRUVICA [Suspect]
     Active Substance: IBRUTINIB
     Indication: Chronic lymphocytic leukaemia
     Route: 048
     Dates: start: 20161130

REACTIONS (7)
  - Skin cancer [Unknown]
  - Oral surgery [Unknown]
  - Blood blister [Unknown]
  - Post procedural haemorrhage [Unknown]
  - Blood iron decreased [Unknown]
  - Onychomadesis [Unknown]
  - Blood potassium decreased [Unknown]
